FAERS Safety Report 8824667 (Version 1)
Quarter: 2012Q4

REPORT INFORMATION
  Report Type: 
  Country: CA (occurrence: CA)
  Receive Date: 20121004
  Receipt Date: 20121004
  Transmission Date: 20130627
  Serious: Yes (Death, Other)
  Sender: FDA-Public Use
  Company Number: PHHY2011CA29341

PATIENT
  Sex: Female
  Weight: 49.89 kg

DRUGS (5)
  1. SANDOSTATIN LAR [Suspect]
     Indication: NEUROENDOCRINE TUMOUR
     Dosage: 30 mg, every 4 weeks
     Route: 030
     Dates: start: 20110208
  2. SANDOSTATIN LAR [Suspect]
     Dosage: 30 mg every 3 weeks
     Route: 030
  3. SANDOSTATIN LAR [Suspect]
     Dosage: 5 mg, Every 4 hours
  4. SANDOSTATIN LAR [Suspect]
     Dosage: 30 mg, Every 3 weeks
     Route: 030
     Dates: end: 20120922
  5. STATEX [Concomitant]
     Dosage: 10 mg, half every 12 hrs for 7 days

REACTIONS (15)
  - Death [Fatal]
  - Malignant neoplasm progression [Unknown]
  - Heart rate increased [Unknown]
  - Weight decreased [Unknown]
  - Oedema peripheral [Recovering/Resolving]
  - Diarrhoea [Recovering/Resolving]
  - Somnolence [Unknown]
  - Abdominal discomfort [Not Recovered/Not Resolved]
  - Abdominal distension [Not Recovered/Not Resolved]
  - Abdominal pain [Not Recovered/Not Resolved]
  - Flatulence [Unknown]
  - Decreased appetite [Unknown]
  - Asthenia [Unknown]
  - Fatigue [Unknown]
  - Pain [Unknown]
